FAERS Safety Report 23694031 (Version 1)
Quarter: 2024Q2

REPORT INFORMATION
  Report Type: Spontaneous
  Country: GB (occurrence: GB)
  Receive Date: 20240401
  Receipt Date: 20240401
  Transmission Date: 20240716
  Serious: Yes (Hospitalization, Other)
  Sender: FDA-Public Use
  Company Number: GB-MYLANLABS-2023M1139080

PATIENT
  Sex: Male

DRUGS (1)
  1. CLOZARIL [Suspect]
     Active Substance: CLOZAPINE
     Indication: Schizophrenia
     Dosage: UNK (ESTIMATED DATE: 01-MAR-2024)
     Route: 048
     Dates: start: 20151201, end: 202403

REACTIONS (2)
  - Schizophrenia [Unknown]
  - Anaemia [Unknown]

NARRATIVE: CASE EVENT DATE: 20231228
